FAERS Safety Report 10944536 (Version 2)
Quarter: 2015Q2

REPORT INFORMATION
  Report Type: Spontaneous
  Country: JP (occurrence: JP)
  Receive Date: 20150323
  Receipt Date: 20150428
  Transmission Date: 20150821
  Serious: Yes (Other)
  Sender: FDA-Public Use
  Company Number: JP-ORION CORPORATION ORION PHARMA-ENT 2015-0063

PATIENT
  Sex: Female

DRUGS (5)
  1. LEPRINTON [Concomitant]
     Route: 065
  2. NEUPRO [Concomitant]
     Active Substance: ROTIGOTINE
     Route: 065
  3. BAKTAR [Concomitant]
     Active Substance: SULFAMETHOXAZOLE\TRIMETHOPRIM
     Route: 065
  4. COMTAN [Suspect]
     Active Substance: ENTACAPONE
     Indication: PARKINSON^S DISEASE
     Route: 048
  5. AMANTADINE [Suspect]
     Active Substance: AMANTADINE
     Route: 048

REACTIONS (7)
  - Hepatic function abnormal [Unknown]
  - Chromaturia [Unknown]
  - Blood potassium increased [Unknown]
  - Pneumonia [Recovered/Resolved]
  - Dysphonia [Recovered/Resolved]
  - Drug dose omission [Unknown]
  - Musculoskeletal stiffness [Unknown]
